FAERS Safety Report 11905952 (Version 1)
Quarter: 2016Q1

REPORT INFORMATION
  Report Type: Spontaneous
  Country: US (occurrence: None)
  Receive Date: 20160108
  Receipt Date: 20160108
  Transmission Date: 20160526
  Serious: No
  Sender: FDA-Public Use
  Company Number: None

PATIENT
  Age: 53 Year
  Sex: Female
  Weight: 99.79 kg

DRUGS (1)
  1. REMICADE [Suspect]
     Active Substance: INFLIXIMAB
     Indication: ARTHRITIS
     Dosage: EVERY SIX WEEKS
     Route: 042

REACTIONS (3)
  - Peripheral swelling [None]
  - Gait disturbance [None]
  - Dizziness [None]

NARRATIVE: CASE EVENT DATE: 20151231
